FAERS Safety Report 8761979 (Version 1)
Quarter: 2012Q4

REPORT INFORMATION
  Report Type: 
  Country: US (occurrence: US)
  Receive Date: 20120830
  Receipt Date: 20120830
  Transmission Date: 20130627
  Serious: Yes (Other)
  Sender: FDA-Public Use
  Company Number: US-ASTRAZENECA-2012SE28376

PATIENT
  Age: 75 Year
  Sex: Female

DRUGS (4)
  1. NEXIUM [Suspect]
     Route: 048
  2. CLONIDINE [Concomitant]
  3. GAVASCON [Concomitant]
  4. NORVASC [Concomitant]

REACTIONS (5)
  - Glaucoma [Unknown]
  - Hypertension [Unknown]
  - Stress [Unknown]
  - Headache [Unknown]
  - Drug ineffective [Unknown]
